FAERS Safety Report 9851871 (Version 3)
Quarter: 2014Q2

REPORT INFORMATION
  Report Type: Report from Study
  Country: CA (occurrence: CA)
  Receive Date: 20140129
  Receipt Date: 20140429
  Transmission Date: 20141212
  Serious: Yes (Other)
  Sender: FDA-Public Use
  Company Number: CA-ABBVIE-14P-028-1194600-00

PATIENT
  Sex: Female

DRUGS (2)
  1. HUMIRA [Suspect]
     Indication: COLITIS ULCERATIVE
     Route: 058
     Dates: start: 20121207, end: 20140109
  2. HUMIRA [Suspect]
     Dates: start: 20140123

REACTIONS (2)
  - Carpal tunnel syndrome [Recovering/Resolving]
  - Hypertension [Not Recovered/Not Resolved]
